FAERS Safety Report 23211515 (Version 2)
Quarter: 2023Q4

REPORT INFORMATION
  Report Type: Spontaneous
  Country: US (occurrence: US)
  Receive Date: 20231121
  Receipt Date: 20231222
  Transmission Date: 20240109
  Serious: Yes (Other)
  Sender: FDA-Public Use
  Company Number: US-Blueprint Medicines Corporation-1721

PATIENT
  Age: 55 Year
  Sex: Female

DRUGS (3)
  1. AYVAKIT [Suspect]
     Active Substance: AVAPRITINIB
     Indication: Systemic mastocytosis
     Route: 048
     Dates: start: 20231024
  2. AYVAKIT [Suspect]
     Active Substance: AVAPRITINIB
     Route: 065
     Dates: start: 20231024
  3. COVID-19 VACCINE NOS [Suspect]
     Active Substance: COVID-19 VACCINE NOS
     Indication: COVID-19
     Route: 065

REACTIONS (18)
  - Eye haemorrhage [Unknown]
  - Brain fog [Unknown]
  - Dry eye [Unknown]
  - White blood cell count abnormal [Unknown]
  - Abdominal discomfort [Unknown]
  - Nausea [Unknown]
  - Thirst [Unknown]
  - Fatigue [Unknown]
  - Constipation [Unknown]
  - Alopecia [Unknown]
  - Nightmare [Unknown]
  - Insomnia [Unknown]
  - Irritability [Unknown]
  - Eye irritation [Unknown]
  - Lacrimation increased [Unknown]
  - Pain [Unknown]
  - Feeling abnormal [Unknown]
  - Tryptase [Unknown]

NARRATIVE: CASE EVENT DATE: 20231114
